FAERS Safety Report 7084517-X (Version None)
Quarter: 2010Q4

REPORT INFORMATION
  Report Type: 
  Country: None (occurrence: None)
  Receive Date: 20101104
  Receipt Date: 20101102
  Transmission Date: 20110411
  Serious: Yes (Hospitalization)
  Sender: FDA-Public Use
  Company Number: US-PFIZER INC-2009162010

PATIENT
  Sex: Male
  Weight: 90.5 kg

DRUGS (16)
  1. BLINDED *NO SUBJECT DRUG [Suspect]
     Indication: PROSTATE CANCER
     Dosage: 12.5 MG, 1X/DAY
     Route: 048
     Dates: start: 20080909, end: 20090105
  2. BLINDED *PLACEBO [Suspect]
     Indication: PROSTATE CANCER
     Dosage: 12.5 MG, 1X/DAY
     Route: 048
     Dates: start: 20080909, end: 20090105
  3. SUNITINIB MALATE [Suspect]
     Indication: PROSTATE CANCER
     Dosage: 12.5 MG, 1X/DAY
     Route: 048
     Dates: start: 20080909, end: 20090105
  4. PREDNISONE [Suspect]
     Indication: PROSTATE CANCER
     Dosage: 5 MG, 2X/DAY
     Route: 048
     Dates: start: 20080909
  5. ACTOS [Concomitant]
     Indication: TYPE 2 DIABETES MELLITUS
     Dosage: UNK
  6. AMLODIPINE [Concomitant]
     Indication: HYPERTENSION
     Dosage: UNK
  7. OMEPRAZOLE [Concomitant]
     Indication: GASTROOESOPHAGEAL REFLUX DISEASE
     Dosage: UNK
  8. GLIPIZIDE [Concomitant]
     Indication: TYPE 2 DIABETES MELLITUS
     Dosage: UNK
  9. FEXOFENADINE [Concomitant]
     Indication: LACRIMATION INCREASED
     Dosage: UNK
     Dates: end: 20090105
  10. CALCIUM CARBONATE/MAGNESIUM HYDROXIDE [Concomitant]
     Indication: ROUTINE HEALTH MAINTENANCE
     Dosage: UNK
  11. VITAMIN B-12 [Concomitant]
     Indication: ROUTINE HEALTH MAINTENANCE
     Dosage: UNK
  12. LOVAZA [Concomitant]
     Indication: ROUTINE HEALTH MAINTENANCE
     Dosage: UNK
  13. SIMVASTATIN [Concomitant]
     Indication: HYPERCHOLESTEROLAEMIA
     Dosage: UNK
  14. ARANESP [Concomitant]
     Indication: ANAEMIA
     Dosage: UNK
     Dates: start: 20080520
  15. LUPRON [Concomitant]
     Indication: PROSTATE CANCER
     Dosage: UNK
  16. ACETYLSALICYLIC ACID [Concomitant]
     Indication: HYPERTENSION
     Dosage: UNK

REACTIONS (6)
  - CARDIAC FAILURE CONGESTIVE [None]
  - DYSPNOEA [None]
  - HAEMOPTYSIS [None]
  - HYPOCALCAEMIA [None]
  - OEDEMA PERIPHERAL [None]
  - PLEURAL EFFUSION [None]
